FAERS Safety Report 8612398-9 (Version None)
Quarter: 2012Q3

REPORT INFORMATION
  Report Type: 
  Country: None (occurrence: None)
  Receive Date: 20120806
  Receipt Date: 20120730
  Transmission Date: 20120928
  Serious: Yes (Other)
  Sender: FDA-Public Use
  Company Number: 1206-305

PATIENT
  Age: 80 Year
  Sex: Female

DRUGS (6)
  1. AMLODIPINE [Concomitant]
  2. VITAMINS AND MINERALS (VITAMINS WITH MINERALS) [Concomitant]
  3. EYLEA [Suspect]
     Indication: AGE-RELATED MACULAR DEGENERATION
     Dosage: INTRAVITREAL
     Dates: start: 20120518, end: 20120518
  4. NAPROXEN (ALEVE) [Concomitant]
  5. PRILOSEC [Concomitant]
  6. PRESERVISION LUTEIN (PRESERVISION LUTEIN EYE VIA. +MIN.SUP.SOFTG.) [Concomitant]

REACTIONS (2)
  - ENDOPHTHALMITIS [None]
  - UVEITIS [None]
